FAERS Safety Report 8186563-1 (Version None)
Quarter: 2012Q1

REPORT INFORMATION
  Report Type: 
  Country: None (occurrence: None)
  Receive Date: 20120306
  Receipt Date: 20120223
  Transmission Date: 20120608
  Serious: Yes (Other)
  Sender: FDA-Public Use
  Company Number: US-COVIDIEN/TYCO HEALTHCARE/MALLINCKRODT-T201200687

PATIENT
  Sex: Male
  Weight: 93.878 kg

DRUGS (7)
  1. SURMONTIL                          /00051802/ [Suspect]
     Indication: PRODUCT USED FOR UNKNOWN INDICATION
     Dosage: UNK
     Dates: start: 19800101
  2. LUDIOMIL                           /00331902/ [Suspect]
     Indication: PRODUCT USED FOR UNKNOWN INDICATION
     Dosage: UNK
     Dates: start: 19800101
  3. PROZAC [Suspect]
     Indication: PRODUCT USED FOR UNKNOWN INDICATION
     Dosage: UNK
     Dates: start: 19800101
  4. AMARYL [Concomitant]
     Indication: DIABETES MELLITUS
     Dosage: 2 MG, QD
     Route: 048
  5. ACTOS [Concomitant]
     Indication: DIABETES MELLITUS
     Dosage: UNK, QD
  6. PAXIL [Suspect]
     Indication: PRODUCT USED FOR UNKNOWN INDICATION
     Dosage: UNK
     Dates: start: 19800101
  7. PAMELOR [Suspect]
     Indication: PRODUCT USED FOR UNKNOWN INDICATION
     Dosage: UNK
     Dates: start: 19800101

REACTIONS (3)
  - MYDRIASIS [None]
  - HYPERKINESIA [None]
  - SWOLLEN TONGUE [None]
